FAERS Safety Report 14921459 (Version 1)
Quarter: 2018Q2

REPORT INFORMATION
  Report Type: Spontaneous
  Country: DE (occurrence: DE)
  Receive Date: 20180522
  Receipt Date: 20180522
  Transmission Date: 20180711
  Serious: Yes (Other)
  Sender: FDA-Public Use
  Company Number: DE-TORRENT-00008455

PATIENT
  Age: 30 Year
  Sex: Male

DRUGS (3)
  1. PERAZIN [Suspect]
     Active Substance: PERAZINE
     Indication: PSYCHOTIC DISORDER
  2. RISPERIDONE 2 MG [Suspect]
     Active Substance: RISPERIDONE
     Indication: PSYCHOTIC DISORDER
     Dosage: UNKNOWN
  3. FLUANXOL [Suspect]
     Active Substance: FLUPENTIXOL
     Indication: PSYCHOTIC DISORDER
     Dosage: UNKNOWN

REACTIONS (2)
  - Tardive dyskinesia [Unknown]
  - Blepharospasm [Unknown]
